FAERS Safety Report 6112116-2 (Version None)
Quarter: 2009Q1

REPORT INFORMATION
  Report Type: 
  Country: None (occurrence: None)
  Receive Date: 20090310
  Receipt Date: 20090224
  Transmission Date: 20090719
  Serious: Yes (Hospitalization)
  Sender: FDA-Public Use
  Company Number: 238531J08USA

PATIENT
  Age: 40 Year
  Sex: Female
  Weight: 93 kg

DRUGS (2)
  1. REBIF [Suspect]
     Indication: MULTIPLE SCLEROSIS
     Dosage: 44 MCG, 3 IN 1 WEEKS, SUBCUTANEOUS
     Route: 058
     Dates: start: 20071128
  2. WELLBUTRIN [Concomitant]

REACTIONS (11)
  - ADVERSE DRUG REACTION [None]
  - CYSTITIS [None]
  - GAIT DISTURBANCE [None]
  - INSOMNIA [None]
  - MIGRAINE [None]
  - MULTIPLE SCLEROSIS RELAPSE [None]
  - PARAESTHESIA [None]
  - PHARYNGEAL OEDEMA [None]
  - RESPIRATORY DISORDER [None]
  - SENSORY LOSS [None]
  - VISION BLURRED [None]
